FAERS Safety Report 6999667-3 (Version None)
Quarter: 2010Q3

REPORT INFORMATION
  Report Type: 
  Country: None (occurrence: None)
  Receive Date: 20100920
  Receipt Date: 20091223
  Transmission Date: 20110219
  Serious: Yes (Other)
  Sender: FDA-Public Use
  Company Number: US-ASTRAZENECA-2009SE33324

PATIENT
  Sex: Female

DRUGS (3)
  1. SEROQUEL [Suspect]
     Indication: DEPRESSION
     Route: 048
  2. COGENTIN [Concomitant]
  3. HALDOL [Concomitant]

REACTIONS (2)
  - NIGHTMARE [None]
  - SUICIDE ATTEMPT [None]
